FAERS Safety Report 13031452 (Version 1)
Quarter: 2016Q4

REPORT INFORMATION
  Report Type: Spontaneous
  Country: CA (occurrence: CA)
  Receive Date: 20161215
  Receipt Date: 20161215
  Transmission Date: 20170207
  Serious: Yes (Other)
  Sender: FDA-Public Use
  Company Number: CA-CELLTRION INC.-2016CA012911

PATIENT

DRUGS (4)
  1. ADVIL [Concomitant]
     Active Substance: IBUPROFEN
  2. TRAMCET [Concomitant]
     Active Substance: ACETAMINOPHEN\TRAMADOL
  3. INFLECTRA [Suspect]
     Active Substance: INFLIXIMAB-DYYB
     Indication: ANKYLOSING SPONDYLITIS
     Route: 042
  4. OXYCODONE [Concomitant]
     Active Substance: OXYCODONE

REACTIONS (1)
  - Haemorrhage [Unknown]
